FAERS Safety Report 12095839 (Version 2)
Quarter: 2016Q1

REPORT INFORMATION
  Report Type: Spontaneous
  Country: US (occurrence: US)
  Receive Date: 20160220
  Receipt Date: 20160309
  Transmission Date: 20160526
  Serious: Yes (Hospitalization)
  Sender: FDA-Public Use
  Company Number: US-AUROBINDO-AUR-APL-2016-01606

PATIENT
  Age: 44 Year
  Sex: Male

DRUGS (1)
  1. METHYLPREDNISOLONE 40MG/VIAL [Suspect]
     Active Substance: METHYLPREDNISOLONE
     Indication: PNEUMONIA
     Dosage: 40 MG, EVERY 6 HOURS
     Route: 042

REACTIONS (3)
  - Aspergillus infection [Unknown]
  - Haematemesis [Unknown]
  - Gastric ulcer [Unknown]
